FAERS Safety Report 12068817 (Version 2)
Quarter: 2016Q1

REPORT INFORMATION
  Report Type: Spontaneous
  Country: US (occurrence: US)
  Receive Date: 20160211
  Receipt Date: 20160315
  Transmission Date: 20160526
  Serious: No
  Sender: FDA-Public Use
  Company Number: PHEH2016US003318

PATIENT

DRUGS (1)
  1. VIVELLE-DOT [Suspect]
     Active Substance: ESTRADIOL
     Indication: PRODUCT USED FOR UNKNOWN INDICATION
     Dosage: 0.1 MG, QD
     Route: 062

REACTIONS (7)
  - Underdose [Unknown]
  - Insomnia [Unknown]
  - Night sweats [Unknown]
  - Menopause [Unknown]
  - Migraine [Unknown]
  - Feeling abnormal [Unknown]
  - Mood swings [Unknown]
